FAERS Safety Report 7675601-8 (Version None)
Quarter: 2011Q3

REPORT INFORMATION
  Report Type: 
  Country: None (occurrence: None)
  Receive Date: 20110810
  Receipt Date: 20110805
  Transmission Date: 20111222
  Serious: Yes (Death, Other)
  Sender: FDA-Public Use
  Company Number: US-AMGEN-USASP2011038332

PATIENT
  Age: 76 Year
  Sex: Male
  Weight: 95.9 kg

DRUGS (4)
  1. CORTICOSTEROIDS [Concomitant]
     Dosage: 1 A?G/KG, UNK
  2. IVIGLOB-EX [Concomitant]
     Dosage: UNK
  3. NPLATE [Suspect]
     Indication: IDIOPATHIC THROMBOCYTOPENIC PURPURA
     Dosage: 2.8 A?G/KG, UNK
     Dates: start: 20110224, end: 20110331
  4. RITUXIMAB [Concomitant]

REACTIONS (2)
  - BRONCHOPULMONARY ASPERGILLOSIS [None]
  - NON-HODGKIN'S LYMPHOMA [None]
